FAERS Safety Report 25083757 (Version 1)
Quarter: 2025Q1

REPORT INFORMATION
  Report Type: Spontaneous
  Country: US (occurrence: US)
  Receive Date: 20250317
  Receipt Date: 20250317
  Transmission Date: 20250409
  Serious: No
  Sender: MYLAN
  Company Number: US-MYLANLABS-2025M1022645

PATIENT
  Age: 79 Year
  Sex: Male
  Weight: 79.9 kg

DRUGS (2)
  1. CELECOXIB [Suspect]
     Active Substance: CELECOXIB
     Indication: Pain
     Dosage: 100 MILLIGRAM, QD (1 CAPSULE ONCE DAILY)
  2. EPLERENONE [Suspect]
     Active Substance: EPLERENONE
     Indication: Diuretic therapy
     Dosage: 25 MILLIGRAM, QD (1 TABLET ONCE DAILY)

REACTIONS (1)
  - Off label use [Unknown]
